FAERS Safety Report 14731138 (Version 1)
Quarter: 2018Q2

REPORT INFORMATION
  Report Type: Spontaneous
  Country: US (occurrence: US)
  Receive Date: 20180406
  Receipt Date: 20180406
  Transmission Date: 20180711
  Serious: No
  Sender: FDA-Public Use
  Company Number: US-PRINSTON PHARMACEUTICAL INC.-2018PRN00001

PATIENT
  Age: 33 Year
  Sex: Male
  Weight: 77.98 kg

DRUGS (3)
  1. VALSARTAN. [Suspect]
     Active Substance: VALSARTAN
     Indication: HYPERTENSION
     Dosage: 160 MG, 1X/DAY
     Route: 048
     Dates: start: 2017, end: 20180101
  2. VITAMIN B12 [Concomitant]
     Active Substance: CYANOCOBALAMIN
     Dosage: UNK, 1X/WEEK
  3. UNSPECIFIED VITAMIN [Concomitant]
     Active Substance: VITAMINS

REACTIONS (1)
  - Coeliac disease [Recovering/Resolving]

NARRATIVE: CASE EVENT DATE: 201709
